FAERS Safety Report 21683437 (Version 1)
Quarter: 2022Q4

REPORT INFORMATION
  Report Type: Spontaneous
  Country: GB (occurrence: None)
  Receive Date: 20221205
  Receipt Date: 20221205
  Transmission Date: 20230112
  Serious: Yes (Hospitalization, Other)
  Sender: FDA-Public Use
  Company Number: 2022A397127

PATIENT
  Age: 88 Year

DRUGS (19)
  1. OMEPRAZOLE [Suspect]
     Active Substance: OMEPRAZOLE
     Dosage: ONE TO BE TAKEN EACH DAY BEFORE EATING AND DRINKING, IF NEEDED20.0MG AS REQUIRED
     Route: 048
  2. AMOXICILLIN [Concomitant]
     Active Substance: AMOXICILLIN
     Dosage: 500MG CAPSULES, ONE TO BE TAKEN THREE TIMES A DAY
  3. CALCIUM\CARBOXYMETHYLCELLULOSE\DEVICE\MAGNESIUM\POTASSIUM\SODIUM CL\SO [Concomitant]
     Active Substance: CALCIUM\CARBOXYMETHYLCELLULOSE\DEVICE\MAGNESIUM\POTASSIUM\SODIUM CL\SORBITOL
  4. COLECALCIFEROL / CALCIUM CARBONATE [Concomitant]
     Dosage: 1.5G CHEWABLE TABLETS, TWO CHEWABLE TABLETS PER DAY, PREFERABLY ONE TABLET EACH MORNING AND EVENING
  5. DOCUSATE [Concomitant]
     Active Substance: DOCUSATE
     Indication: Constipation
     Dosage: 100MG CAPSULES, TAKE TWO TWICE DAILY IF NEEDED
  6. LACTULOSE [Concomitant]
     Active Substance: LACTULOSE
     Indication: Constipation
     Dosage: 15ML TO BE TAKEN TWICE A DAY AS NEEDED
  7. LIDOCAINE/HYDROCORTISONE ACETATE [Concomitant]
     Dosage: 0.275% OINTMENT, APPLY TWICE DAILY
  8. ACETAMINOPHEN [Concomitant]
     Active Substance: ACETAMINOPHEN
     Dosage: 500MG CAPSULES, TWO TO BE TAKEN EVERY 6 HOURS/FOUR TIMES A DAY IF NEEDED
  9. PREDNISOLONE [Concomitant]
     Active Substance: PREDNISOLONE
     Dosage: 5MG TABLETS, 8 TABLETS IN THE MORNING FOR 5 DAYS
  10. ALBUTEROL [Concomitant]
     Active Substance: ALBUTEROL
  11. SODIUM BICARBONATE/SODIUM ALGINATE [Concomitant]
     Dosage: 500MG/100MG CHEWABLE TABLETS SUGAR FREE, ONE OR TWO TO BE CHEWED AFTER MEALS AND ATBEDTIME BEDTIME,
  12. UMECLIDINIUM [Concomitant]
     Active Substance: UMECLIDINIUM
  13. FLUTICASONE FUROATE\VILANTEROL TRIFENATATE [Concomitant]
     Active Substance: FLUTICASONE FUROATE\VILANTEROL TRIFENATATE
  14. WARFARIN [Concomitant]
     Active Substance: WARFARIN
     Dosage: 1MG TABLETS, TAKE AS PRESCRIBED IN ANTICOAGULANT TREATMENT BOOK
  15. ALBUTEROL SULFATE [Concomitant]
     Active Substance: ALBUTEROL SULFATE
  16. PARAFFIN SOFT/EMULSIFYING WAX [Concomitant]
     Dosage: APPLY 2-3 TIMES DAILY AS NEEDED
  17. VENTOLIN [Concomitant]
     Active Substance: ALBUTEROL SULFATE
     Dosage: 00MICROGRAMS/DOSE
  18. EVOHALER [Concomitant]
     Dosage: INHALE 2 DOSES AS NEEDED
  19. TRELEGY ELLIPTA [Concomitant]
     Active Substance: FLUTICASONE FUROATE\UMECLIDINIUM BROMIDE\VILANTEROL TRIFENATATE
     Dosage: 92MICROGRAMS// 55MICROGRAMS/DOSE / 22MICROGRAMS/DOSE DRY POWDER INHALER, ONE DOSE TO BE INHALED E...

REACTIONS (2)
  - Osteoporosis [Unknown]
  - Femoral neck fracture [Unknown]
